FAERS Safety Report 21925915 (Version 1)
Quarter: 2023Q1

REPORT INFORMATION
  Report Type: Report from Study
  Country: DE (occurrence: DE)
  Receive Date: 20230130
  Receipt Date: 20230130
  Transmission Date: 20230418
  Serious: Yes (Hospitalization)
  Sender: FDA-Public Use
  Company Number: DE-MYLANLABS-2023M1007846

PATIENT
  Age: 16 Year

DRUGS (6)
  1. ARIPIPRAZOLE [Interacting]
     Active Substance: ARIPIPRAZOLE
     Indication: Autism spectrum disorder
     Dosage: UNK
     Route: 065
  2. ARIPIPRAZOLE [Interacting]
     Active Substance: ARIPIPRAZOLE
     Indication: Intellectual disability
  3. MELPERONE [Interacting]
     Active Substance: MELPERONE
     Indication: Intellectual disability
     Dosage: UNK
     Route: 065
  4. MELPERONE [Interacting]
     Active Substance: MELPERONE
     Indication: Autism spectrum disorder
  5. RISPERIDONE [Interacting]
     Active Substance: RISPERIDONE
     Indication: Intellectual disability
     Dosage: UNK
     Route: 065
  6. RISPERIDONE [Interacting]
     Active Substance: RISPERIDONE
     Indication: Autism spectrum disorder

REACTIONS (4)
  - Electrocardiogram QT prolonged [Unknown]
  - Drug interaction [Unknown]
  - Medication error [Unknown]
  - Off label use [Unknown]
